FAERS Safety Report 10530147 (Version 3)
Quarter: 2015Q2

REPORT INFORMATION
  Report Type: Spontaneous
  Country: US (occurrence: US)
  Receive Date: 20141021
  Receipt Date: 20150406
  Transmission Date: 20150821
  Serious: Yes (Death)
  Sender: FDA-Public Use
  Company Number: US-PFIZER INC-2014285682

PATIENT
  Sex: Male

DRUGS (1)
  1. XALKORI [Suspect]
     Active Substance: CRIZOTINIB
     Indication: OESOPHAGEAL CARCINOMA
     Dosage: UNK
     Dates: start: 201405, end: 201407

REACTIONS (6)
  - Decreased appetite [Unknown]
  - Disease progression [Fatal]
  - Oesophageal carcinoma [Fatal]
  - Product use issue [Unknown]
  - Fatigue [Unknown]
  - Constipation [Unknown]
